FAERS Safety Report 6269316-0 (Version None)
Quarter: 2009Q3

REPORT INFORMATION
  Report Type: 
  Country: None (occurrence: None)
  Receive Date: 20090713
  Receipt Date: 20090629
  Transmission Date: 20100115
  Serious: Yes (Hospitalization)
  Sender: FDA-Public Use
  Company Number: PAR_03002_2009

PATIENT
  Sex: Female

DRUGS (3)
  1. IBUPROFEN [Suspect]
     Indication: DRUG USE FOR UNKNOWN INDICATION
     Dosage: (1 DF PRN ORAL)
     Route: 048
     Dates: start: 20090225, end: 20090311
  2. CARDIOASPIRIN (CARDIOASPIRIN - ACETYLSALICYLIC ACID) (NOT SPECIFIED) [Suspect]
     Indication: PROPHYLAXIS
     Dosage: (100 MG ORAL)
     Route: 048
     Dates: start: 20080101, end: 20090311
  3. ALTIAZEM [Concomitant]

REACTIONS (2)
  - EROSIVE DUODENITIS [None]
  - GASTRIC ULCER [None]
